FAERS Safety Report 5094264-1 (Version None)
Quarter: 2006Q3

REPORT INFORMATION
  Report Type: 
  Country: None (occurrence: None)
  Receive Date: 20060831
  Receipt Date: 20060808
  Transmission Date: 20061208
  Serious: Yes (Hospitalization)
  Sender: FDA-Public Use
  Company Number: FR-GLAXOSMITHKLINE-B0433971A

PATIENT
  Age: 48 Year
  Sex: Male

DRUGS (4)
  1. COMBIVIR [Suspect]
     Indication: HIV INFECTION
     Dosage: 2UNIT PER DAY
     Route: 048
     Dates: end: 20060201
  2. FANSIDAR [Suspect]
     Indication: MALARIA
     Route: 048
  3. SUSTIVA [Suspect]
     Indication: HIV INFECTION
     Dosage: 1.2G PER DAY
     Route: 048
     Dates: start: 20051209, end: 20060201
  4. ACETAMINOPHEN [Concomitant]
     Dosage: 6TAB PER DAY
     Route: 048
     Dates: start: 20060201, end: 20060201

REACTIONS (13)
  - ALANINE AMINOTRANSFERASE INCREASED [None]
  - ARTHRALGIA [None]
  - ASPARTATE AMINOTRANSFERASE INCREASED [None]
  - BLOOD ALKALINE PHOSPHATASE INCREASED [None]
  - CHILLS [None]
  - CHROMATURIA [None]
  - FAECES PALE [None]
  - HEADACHE [None]
  - HEPATITIS [None]
  - HYPERBILIRUBINAEMIA [None]
  - JAUNDICE [None]
  - MALARIA [None]
  - PYREXIA [None]
